FAERS Safety Report 5605723-4 (Version None)
Quarter: 2008Q1

REPORT INFORMATION
  Report Type: 
  Country: None (occurrence: None)
  Receive Date: 20080129
  Receipt Date: 20080116
  Transmission Date: 20080703
  Serious: Yes (Hospitalization)
  Sender: FDA-Public Use
  Company Number: US-ELI_LILLY_AND_COMPANY-US200712004737

PATIENT
  Sex: Female
  Weight: 95.238 kg

DRUGS (10)
  1. BYETTA [Suspect]
     Dosage: UNK, UNK
     Route: 058
     Dates: end: 20070319
  2. BYETTA [Suspect]
     Dates: start: 20070323, end: 20070501
  3. LANTUS [Concomitant]
  4. NOVOLOG [Concomitant]
  5. MICARDIS HCT [Concomitant]
     Indication: HYPERTENSION
     Dosage: UNK, UNK
     Route: 048
  6. METOLAZONE [Concomitant]
     Indication: HYPERTENSION
     Dosage: 2.5 MG, UNK
     Route: 048
  7. CARDIZEM CD [Concomitant]
     Indication: HYPERTENSION
     Dosage: 120 MG, UNK
     Route: 048
  8. ATENOLOL [Concomitant]
     Indication: HYPERTENSION
     Dosage: 100 MG, UNK
     Route: 048
  9. PROTONIX [Concomitant]
     Indication: GASTROOESOPHAGEAL REFLUX DISEASE
     Dosage: 40 MG, UNK
     Route: 048
  10. LIPITOR [Concomitant]
     Indication: BLOOD CHOLESTEROL INCREASED
     Dosage: 10 MG, UNK

REACTIONS (7)
  - ANAEMIA [None]
  - BLOOD GLUCOSE DECREASED [None]
  - DEHYDRATION [None]
  - DIARRHOEA [None]
  - GASTROENTERITIS [None]
  - NAUSEA [None]
  - WEIGHT DECREASED [None]
